FAERS Safety Report 5273347-7 (Version None)
Quarter: 2007Q1

REPORT INFORMATION
  Report Type: 
  Country: None (occurrence: None)
  Receive Date: 20070319
  Receipt Date: 20070304
  Transmission Date: 20070707
  Serious: Yes (Other)
  Sender: FDA-Public Use
  Company Number: 234375

PATIENT
  Age: 68 Year
  Sex: Male
  Weight: 69 kg

DRUGS (11)
  1. RITUXAN [Suspect]
     Indication: NON-HODGKIN'S LYMPHOMA
     Dosage: 375 MG, QD, INTRAVENOUS
     Route: 042
     Dates: start: 20061006, end: 20061124
  2. FERROMIA (SODIUM FERROUS CITRATE) [Concomitant]
  3. LASIX [Concomitant]
  4. ALDACTONE [Concomitant]
  5. URSO 250 [Concomitant]
  6. OCTOTIAMINE (OCTOTIAMINE) [Concomitant]
  7. ASPARA (MAGNESIUM NOS, POTASSIUM ASPARTATE) [Concomitant]
  8. CHINESE MEDICINE (CHINESE TRADITIONAL MEDICINE) [Concomitant]
  9. MOSAPRIDE CITRATE (MOSAPRIDE CITRATE) [Concomitant]
  10. DEXTROMETHORPHAN HYDROBROMIDE [Concomitant]
  11. RABEPRAZOLE SODIUM [Concomitant]

REACTIONS (6)
  - ANAEMIA [None]
  - GASTRIC ULCER [None]
  - GASTROINTESTINAL HAEMORRHAGE [None]
  - HELICOBACTER INFECTION [None]
  - HEPATIC FAILURE [None]
  - TUMOUR LYSIS SYNDROME [None]
